FAERS Safety Report 4524861-0 (Version None)
Quarter: 2004Q4

REPORT INFORMATION
  Report Type: 
  Country: None (occurrence: None)
  Receive Date: 20041210
  Receipt Date: 20041210
  Transmission Date: 20050328
  Serious: Yes (Other)
  Sender: FDA-Public Use
  Company Number: None

PATIENT
  Age: 59 Year
  Sex: Female

DRUGS (1)
  1. PROZAC [Suspect]
     Dosage: 3 TABS PO QD
     Route: 048
     Dates: start: 20030101

REACTIONS (3)
  - DEPRESSION [None]
  - DISEASE RECURRENCE [None]
  - PHARMACEUTICAL PRODUCT COMPLAINT [None]
